FAERS Safety Report 5325389-0 (Version None)
Quarter: 2007Q2

REPORT INFORMATION
  Report Type: 
  Country: None (occurrence: None)
  Receive Date: 20070509
  Receipt Date: 20070426
  Transmission Date: 20071010
  Serious: Yes (Other)
  Sender: FDA-Public Use
  Company Number: 07H-028-0312524-00

PATIENT
  Age: 26 Year
  Sex: Male
  Weight: 81.1939 kg

DRUGS (10)
  1. PENTOTHAL [Suspect]
     Indication: COMA
     Dosage: SEE IMAGE
  2. PHENYTOIN [Suspect]
     Indication: CONVULSION PROPHYLAXIS
     Dosage: SEE IMAGE
     Route: 040
  3. PROPOFOL [Concomitant]
  4. FENTANYL [Concomitant]
  5. NOREPINEPHRINE BITARTRATE [Concomitant]
  6. INSULIN (INSULIN) [Concomitant]
  7. 20% MANNITOL (MANNITOL) [Concomitant]
  8. 3% SALINE (SODIUM CHLORIDE) [Concomitant]
  9. ROCURONIUM (ROCURONIUM) [Concomitant]
  10. ACETAMINOPHEN [Concomitant]

REACTIONS (4)
  - FEBRILE NEUTROPENIA [None]
  - INFECTION [None]
  - INTRACRANIAL PRESSURE INCREASED [None]
  - NO THERAPEUTIC RESPONSE [None]
